FAERS Safety Report 5467953-4 (Version None)
Quarter: 2007Q3

REPORT INFORMATION
  Report Type: 
  Country: None (occurrence: None)
  Receive Date: 20070924
  Receipt Date: 20070910
  Transmission Date: 20080115
  Serious: Yes (Other)
  Sender: FDA-Public Use
  Company Number: 2007BI019059

PATIENT
  Age: 39 Year
  Sex: Male

DRUGS (1)
  1. NATALIZUMAB (NATALIZUMAB) [Suspect]
     Indication: MULTIPLE SCLEROSIS
     Dosage: 300 MG;QM; IV
     Route: 042
     Dates: start: 20070301, end: 20070601

REACTIONS (5)
  - ARTHRALGIA [None]
  - ARTHRITIS [None]
  - BODY TEMPERATURE INCREASED [None]
  - JOINT SWELLING [None]
  - SARCOIDOSIS [None]
